FAERS Safety Report 20530287 (Version 2)
Quarter: 2022Q2

REPORT INFORMATION
  Report Type: Report from Study
  Country: EG (occurrence: EG)
  Receive Date: 20220301
  Receipt Date: 20220425
  Transmission Date: 20220721
  Serious: Yes (Other)
  Sender: FDA-Public Use
  Company Number: EG-NOVARTISPH-NVSC2022EG042108

PATIENT
  Age: 54 Year
  Sex: Female

DRUGS (3)
  1. GLIVEC [Suspect]
     Active Substance: IMATINIB MESYLATE
     Indication: Chronic myeloid leukaemia
     Dosage: 400 MG (4 CAPS)
     Route: 048
     Dates: start: 201910, end: 202108
  2. CALCIUM DOBESILATE [Concomitant]
     Active Substance: CALCIUM DOBESILATE
     Indication: Capillary disorder
     Dosage: UNK
     Route: 048
     Dates: start: 2020
  3. NEBIVOLOL HYDROCHLORIDE [Concomitant]
     Active Substance: NEBIVOLOL HYDROCHLORIDE
     Indication: Hypertension
     Dosage: 0.5 TABLET QD
     Route: 048

REACTIONS (8)
  - Tumour marker increased [Recovering/Resolving]
  - Intraocular pressure increased [Recovering/Resolving]
  - Optic nerve injury [Not Recovered/Not Resolved]
  - Blindness unilateral [Not Recovered/Not Resolved]
  - Vision blurred [Not Recovered/Not Resolved]
  - Diabetes mellitus [Recovering/Resolving]
  - Depression [Recovering/Resolving]
  - Drug ineffective [Not Recovered/Not Resolved]

NARRATIVE: CASE EVENT DATE: 20191201
